FAERS Safety Report 6890989-3 (Version None)
Quarter: 2010Q3

REPORT INFORMATION
  Report Type: 
  Country: None (occurrence: None)
  Receive Date: 20100731
  Receipt Date: 20090428
  Transmission Date: 20110219
  Serious: No
  Sender: FDA-Public Use
  Company Number: US-PFIZER INC-2009206615

PATIENT
  Sex: Male
  Weight: 67.6 kg

DRUGS (2)
  1. LIPITOR [Suspect]
     Indication: BLOOD CHOLESTEROL ABNORMAL
     Dosage: 10 MG, 1X/DAY
  2. MULTI-VITAMINS [Concomitant]
     Dosage: UNK

REACTIONS (3)
  - INSOMNIA [None]
  - MUSCULOSKELETAL PAIN [None]
  - PAIN [None]
